FAERS Safety Report 12948044 (Version 1)
Quarter: 2016Q4

REPORT INFORMATION
  Report Type: Spontaneous
  Country: US (occurrence: US)
  Receive Date: 20161117
  Receipt Date: 20161117
  Transmission Date: 20170207
  Serious: No
  Sender: FDA-Public Use
  Company Number: US-009507513-1611USA005177

PATIENT

DRUGS (2)
  1. STERILE DILUENT [Suspect]
     Active Substance: WATER
  2. PREGNYL [Suspect]
     Active Substance: CHORIOGONADOTROPIN ALFA

REACTIONS (2)
  - No adverse event [Unknown]
  - Wrong technique in product usage process [Unknown]
